FAERS Safety Report 9370355 (Version 4)
Quarter: 2014Q2

REPORT INFORMATION
  Report Type: Report from Study
  Country: US (occurrence: US)
  Receive Date: 20130626
  Receipt Date: 20140627
  Transmission Date: 20141212
  Serious: Yes (Other)
  Sender: FDA-Public Use
  Company Number: US-GILEAD-2013-0077537

PATIENT
  Age: 35 Year
  Sex: Female

DRUGS (5)
  1. TENOFOVIR DISOPROXIL FUMARATE [Suspect]
     Indication: HIV INFECTION
     Dosage: 300 MG, QD
     Route: 048
     Dates: start: 20120816
  2. DARUNAVIR [Suspect]
     Indication: HIV INFECTION
     Dosage: 800 MG, QD
     Route: 048
     Dates: start: 20120816
  3. EMTRICITABINE [Suspect]
     Indication: HIV INFECTION
     Dosage: 200 MG, QD
     Route: 048
     Dates: start: 20120816
  4. RITONAVIR [Suspect]
     Indication: HIV INFECTION
     Dosage: 100 MG, QD
     Route: 048
     Dates: start: 20120816
  5. SELZENTRY [Suspect]
     Indication: HIV INFECTION
     Dosage: 150 MG, QD
     Route: 048
     Dates: start: 20120816

REACTIONS (1)
  - Abortion spontaneous [Recovered/Resolved]
